FAERS Safety Report 8835782 (Version 2)
Quarter: 2012Q4

REPORT INFORMATION
  Report Type: Report from Study
  Country: US (occurrence: US)
  Receive Date: 20121011
  Receipt Date: 20121112
  Transmission Date: 20130627
  Serious: Yes (Life-Threatening, Other)
  Sender: FDA-Public Use
  Company Number: US-ASTELLAS-2012US010016

PATIENT
  Age: 87 Year
  Sex: Female
  Weight: 51 kg

DRUGS (5)
  1. ERLOTINIB TABLET [Suspect]
     Indication: NON-SMALL CELL LUNG CANCER
     Dosage: 100 mg, UID/QD
     Route: 048
     Dates: start: 20120704, end: 20120829
  2. CALCIUM CARBONATE [Concomitant]
     Indication: PRODUCT USED FOR UNKNOWN INDICATION
     Dosage: UNK
     Route: 065
  3. ALBUTEROL                          /00139502/ [Concomitant]
     Indication: PRODUCT USED FOR UNKNOWN INDICATION
     Dosage: UNK
     Route: 065
  4. TUSSIONEX                          /00140501/ [Concomitant]
     Indication: COUGH
     Dosage: UNK
     Route: 065
  5. TYLENOL /00020001/ [Concomitant]
     Indication: PRODUCT USED FOR UNKNOWN INDICATION
     Dosage: UNK
     Route: 065

REACTIONS (9)
  - Incorrect dose administered [Unknown]
  - Cardiac tamponade [Recovered/Resolved]
  - Pleural effusion [Recovered/Resolved]
  - Deafness [Unknown]
  - Oesophageal ulcer [Unknown]
  - Alopecia [Not Recovered/Not Resolved]
  - Epistaxis [Recovered/Resolved]
  - Skin exfoliation [Recovered/Resolved]
  - Weight decreased [Recovered/Resolved]
